FAERS Safety Report 8407427-1 (Version None)
Quarter: 2012Q2

REPORT INFORMATION
  Report Type: 
  Country: None (occurrence: None)
  Receive Date: 20120323
  Receipt Date: 20111130
  Transmission Date: 20120825
  Serious: Yes (Other)
  Sender: FDA-Public Use
  Company Number: 163-21880-11120051

PATIENT
  Age: 65 Year
  Sex: Male

DRUGS (1)
  1. REVLIMID [Suspect]
     Indication: MULTIPLE MYELOMA
     Dosage: 25 MG, QD, PO
     Route: 048
     Dates: start: 20110804, end: 20111101

REACTIONS (2)
  - NEOPLASM PROGRESSION [None]
  - MULTIPLE MYELOMA [None]
